FAERS Safety Report 6931706-8 (Version None)
Quarter: 2010Q3

REPORT INFORMATION
  Report Type: 
  Country: None (occurrence: None)
  Receive Date: 20100812
  Receipt Date: 20090623
  Transmission Date: 20110219
  Serious: No
  Sender: FDA-Public Use
  Company Number: 2009-00157

PATIENT
  Age: 67 Year
  Sex: Female
  Weight: 58.0604 kg

DRUGS (5)
  1. ZICAM COLD REMEDY NASAL GEL [Suspect]
     Dosage: 2004-2005
  2. LISINOPRIL [Concomitant]
  3. HYDROCHLOROTHIAZIDE [Concomitant]
  4. OMEPRAZOLE [Concomitant]
  5. ADVAIR DISKUS 100/50 [Concomitant]

REACTIONS (4)
  - AGEUSIA [None]
  - ANOSMIA [None]
  - BURNING SENSATION [None]
  - DIZZINESS [None]
